FAERS Safety Report 8590359-6 (Version None)
Quarter: 2012Q3

REPORT INFORMATION
  Report Type: 
  Country: None (occurrence: None)
  Receive Date: 20120813
  Receipt Date: 20120807
  Transmission Date: 20120928
  Serious: Yes (Other)
  Sender: FDA-Public Use
  Company Number: SE-PFIZER INC-2012182231

PATIENT
  Sex: Female

DRUGS (3)
  1. ALPRAZOLAM [Suspect]
     Dosage: 7.5 MG, DAILY
     Dates: start: 20090101, end: 20120116
  2. ALPRAZOLAM [Suspect]
     Indication: INJURY
     Dosage: UNK
     Dates: start: 20081211
  3. ALPRAZOLAM [Suspect]
     Indication: BURNOUT SYNDROME
     Dosage: 3 MG, DAILY

REACTIONS (11)
  - MOVEMENT DISORDER [None]
  - BEDRIDDEN [None]
  - OVERDOSE [None]
  - MUSCLE SPASMS [None]
  - WITHDRAWAL SYNDROME [None]
  - QUALITY OF LIFE DECREASED [None]
  - BALANCE DISORDER [None]
  - FEELING ABNORMAL [None]
  - PAIN [None]
  - MEMORY IMPAIRMENT [None]
  - DYSLEXIA [None]
